FAERS Safety Report 7056698-5 (Version None)
Quarter: 2010Q4

REPORT INFORMATION
  Report Type: 
  Country: None (occurrence: None)
  Receive Date: 20101019
  Receipt Date: 20101004
  Transmission Date: 20110411
  Serious: Yes (Other)
  Sender: FDA-Public Use
  Company Number: AUR-APL-2010-02456

PATIENT
  Age: 49 Year
  Sex: Female

DRUGS (5)
  1. LAMOTRIGINE [Suspect]
     Indication: SCHIZOPHRENIA
  2. PAROXETINE HCL [Suspect]
     Indication: DEPRESSION
  3. AMISULPRIDE [Suspect]
     Indication: SCHIZOPHRENIA
  4. CLOZARIL [Suspect]
     Indication: SCHIZOPHRENIA
     Dosage: ORAL
     Route: 048
     Dates: start: 20050207
  5. RAMIPRIL [Suspect]
     Indication: BLOOD PRESSURE

REACTIONS (3)
  - BREAST CANCER FEMALE [None]
  - METASTASES TO SPINE [None]
  - PLATELET COUNT DECREASED [None]
